FAERS Safety Report 12791344 (Version 4)
Quarter: 2017Q3

REPORT INFORMATION
  Report Type: Spontaneous
  Country: US (occurrence: US)
  Receive Date: 20160929
  Receipt Date: 20170706
  Transmission Date: 20171127
  Serious: Yes (Other)
  Sender: FDA-Public Use
  Company Number: US-JNJFOC-20160927707

PATIENT
  Sex: Male

DRUGS (3)
  1. CIPROFLOXACIN. [Suspect]
     Active Substance: CIPROFLOXACIN
     Indication: SINUSITIS
     Route: 065
     Dates: start: 20140917, end: 20140927
  2. LEVAQUIN [Suspect]
     Active Substance: LEVOFLOXACIN
     Indication: SINUSITIS
     Route: 065
     Dates: start: 2008
  3. CIPROFLOXACIN. [Suspect]
     Active Substance: CIPROFLOXACIN
     Indication: SINUSITIS
     Route: 065
     Dates: start: 20140930, end: 20141013

REACTIONS (7)
  - Visual impairment [Unknown]
  - Musculoskeletal disorder [Unknown]
  - Hypoacusis [Unknown]
  - Cardiovascular disorder [Unknown]
  - Polyneuropathy [Not Recovered/Not Resolved]
  - Mental disorder [Unknown]
  - Skin disorder [Unknown]

NARRATIVE: CASE EVENT DATE: 2008
